FAERS Safety Report 17884440 (Version 1)
Quarter: 2020Q2

REPORT INFORMATION
  Report Type: Spontaneous
  Country: US (occurrence: US)
  Receive Date: 20200611
  Receipt Date: 20200611
  Transmission Date: 20200714
  Serious: No
  Sender: FDA-Public Use
  Company Number: US-PFIZER INC-2020226772

PATIENT
  Age: 58 Year
  Sex: Female
  Weight: 58.96 kg

DRUGS (1)
  1. IBRANCE [Suspect]
     Active Substance: PALBOCICLIB
     Indication: BREAST CANCER FEMALE
     Dosage: 100 MG, CYCLIC (DAILY 21 DAYS)
     Route: 048
     Dates: start: 20200227

REACTIONS (1)
  - White blood cell count decreased [Unknown]
